FAERS Safety Report 8556045-3 (Version None)
Quarter: 2012Q3

REPORT INFORMATION
  Report Type: 
  Country: None (occurrence: None)
  Receive Date: 20120801
  Receipt Date: 20120718
  Transmission Date: 20120928
  Serious: No
  Sender: FDA-Public Use
  Company Number: US-009507513-2012SP026361

PATIENT

DRUGS (2)
  1. IMPLANON [Suspect]
     Indication: CONTRACEPTION
     Dosage: 1 DF, UNK
     Dates: start: 20120130
  2. ACETAMINOPHEN (+) DIPHENHYDRAMINE HYDROCHLORIDE [Concomitant]

REACTIONS (1)
  - UNINTENDED PREGNANCY [None]
